FAERS Safety Report 4779792-8 (Version None)
Quarter: 2005Q3

REPORT INFORMATION
  Report Type: 
  Country: None (occurrence: None)
  Receive Date: 20050914
  Receipt Date: 20050314
  Transmission Date: 20060218
  Serious: Yes (Death)
  Sender: FDA-Public Use
  Company Number: 163-20785-04010033

PATIENT
  Age: 65 Year
  Sex: Female

DRUGS (3)
  1. THALOMID [Suspect]
     Indication: MULTIPLE MYELOMA
     Dosage: 100 MG, QD, ORAL;  200-400MG, QD, ORAL;  50 MG, QD, ORAL
     Route: 048
     Dates: start: 20030424, end: 20031001
  2. THALOMID [Suspect]
     Indication: MULTIPLE MYELOMA
     Dosage: 100 MG, QD, ORAL;  200-400MG, QD, ORAL;  50 MG, QD, ORAL
     Route: 048
     Dates: start: 20040201, end: 20040101
  3. THALOMID [Suspect]
     Indication: MULTIPLE MYELOMA
     Dosage: 100 MG, QD, ORAL;  200-400MG, QD, ORAL;  50 MG, QD, ORAL
     Route: 048
     Dates: start: 20040501, end: 20040901

REACTIONS (4)
  - DEATH [None]
  - DISEASE PROGRESSION [None]
  - HYPOAESTHESIA [None]
  - SOMNOLENCE [None]
